FAERS Safety Report 7892433-6 (Version None)
Quarter: 2011Q4

REPORT INFORMATION
  Report Type: 
  Country: None (occurrence: None)
  Receive Date: 20111102
  Receipt Date: 20111021
  Transmission Date: 20120403
  Serious: Yes (Other)
  Sender: FDA-Public Use
  Company Number: US-006238

PATIENT
  Age: 40 Year
  Sex: Female
  Weight: 58.9676 kg

DRUGS (4)
  1. PROGESTERONE [Suspect]
     Indication: IN VITRO FERTILISATION
     Dosage: (100 MG TID VAGINAL)
     Route: 067
     Dates: start: 20110508, end: 20110531
  2. CHORIONIC GONADOTROPIN [Concomitant]
  3. LUTENIZING HORMON-RELEASING HORMONE [Concomitant]
  4. FOLLICLE TIMULATING HORMONE, RECOMBINANT [Concomitant]

REACTIONS (6)
  - SWELLING [None]
  - TRISOMY 21 [None]
  - PRURITUS [None]
  - MATERNAL EXPOSURE TIMING UNSPECIFIED [None]
  - ERYTHEMA [None]
  - ABORTION SPONTANEOUS [None]
